FAERS Safety Report 9714700 (Version 1)
Quarter: 2013Q4

REPORT INFORMATION
  Report Type: Spontaneous
  Country: DK (occurrence: DK)
  Receive Date: 20131126
  Receipt Date: 20131126
  Transmission Date: 20140711
  Serious: Yes (Life-Threatening, Hospitalization)
  Sender: FDA-Public Use
  Company Number: DK-MYLANLABS-2013S1025830

PATIENT
  Age: 64 Year
  Sex: Female

DRUGS (5)
  1. SOTALOL [Suspect]
     Indication: PRODUCT USED FOR UNKNOWN INDICATION
     Dosage: DOSIS: 1 TABLET MORGEN OG 1/2 TABLET AFTEN. STYRKE: 160 MG
  2. SPARKAL [Interacting]
     Indication: HYPERTENSION
     Dosage: DOSIS: 1 TABL DAGLIG, STYRKE: 50 + 5 MG
     Dates: start: 2011
  3. SPARKAL [Concomitant]
     Indication: PRODUCT USED FOR UNKNOWN INDICATION
  4. QUININE [Concomitant]
     Indication: MUSCLE SPASMS
     Dates: start: 201211
  5. LOSARTAN [Concomitant]
     Indication: HYPERTENSION
     Dates: start: 2012

REACTIONS (3)
  - Drug interaction [Unknown]
  - Electrocardiogram QT prolonged [Unknown]
  - Syncope [Unknown]
